FAERS Safety Report 5018229-0 (Version None)
Quarter: 2006Q2

REPORT INFORMATION
  Report Type: 
  Country: None (occurrence: None)
  Receive Date: 20060530
  Receipt Date: 20060515
  Transmission Date: 20061013
  Serious: Yes (Disabling)
  Sender: FDA-Public Use
  Company Number: 2006064502

PATIENT
  Age: 64 Year
  Sex: Female

DRUGS (2)
  1. LIPITOR [Suspect]
     Indication: HYPERCHOLESTEROLAEMIA
     Dosage: 10 MG (1 IN 1 D), ORAL
     Route: 048
     Dates: start: 20040901, end: 20060420
  2. IRBESARTAN [Concomitant]

REACTIONS (10)
  - ARTHRALGIA [None]
  - CHILLS [None]
  - DIARRHOEA [None]
  - DIPLOPIA [None]
  - EYELID OEDEMA [None]
  - HEADACHE [None]
  - MIDDLE INSOMNIA [None]
  - NAUSEA [None]
  - OEDEMA [None]
  - RESTLESSNESS [None]
